FAERS Safety Report 21486537 (Version 4)
Quarter: 2023Q1

REPORT INFORMATION
  Report Type: Spontaneous
  Country: US (occurrence: US)
  Receive Date: 20221020
  Receipt Date: 20230125
  Transmission Date: 20230418
  Serious: No
  Sender: FDA-Public Use
  Company Number: US-PFIZER INC-2018496028

PATIENT
  Age: 74 Year
  Sex: Female
  Weight: 41.73 kg

DRUGS (10)
  1. NICOTROL [Suspect]
     Active Substance: NICOTINE
     Indication: Smoking cessation therapy
     Dosage: UNK UNK, 4X/DAY (1 CARTRIDGE)
  2. NICOTROL [Suspect]
     Active Substance: NICOTINE
     Dosage: UNK UNK, DAILY (3-4 CARTRIDGE DAILY)
  3. NICOTROL [Suspect]
     Active Substance: NICOTINE
     Dosage: 16 MG, DAILY (4 CARTRIDGE A DAY)
     Route: 055
  4. NICOTROL [Suspect]
     Active Substance: NICOTINE
     Dosage: 40 MG, DAILY (4 CATRIDGES PER DAY)
  5. NICOTROL [Suspect]
     Active Substance: NICOTINE
     Dosage: 10 MG, AS NEEDED (IN A PACKAGE OF 6; USE AS NEEDED DAILY)
  6. NICOTROL [Suspect]
     Active Substance: NICOTINE
     Dosage: 10 MG, 4X/DAY (1 PUFF, EVERY 6 HOURS)
  7. NICOTROL [Suspect]
     Active Substance: NICOTINE
     Dosage: 10 MG (STRENGTH: 10 MG)
     Route: 055
  8. NICOTROL [Suspect]
     Active Substance: NICOTINE
     Dosage: 10 MG, AS NEEDED (1 PUFF EVERY 6 HRS PRN)
  9. NICOTROL [Suspect]
     Active Substance: NICOTINE
     Dosage: 6-16 CARTRIDGES/DAY; 6-12 WEEKS, TWICE (ILLEGIBLE)
  10. NICOTROL [Suspect]
     Active Substance: NICOTINE
     Dosage: UNK (1 TO 2 CARTRIDGES DAILY FOR 6 TO 12 WEEKS)

REACTIONS (2)
  - Arthritis [Unknown]
  - Product prescribing error [Unknown]
